FAERS Safety Report 8083463-2 (Version None)
Quarter: 2012Q1

REPORT INFORMATION
  Report Type: 
  Country: None (occurrence: None)
  Receive Date: 20120127
  Receipt Date: 20110125
  Transmission Date: 20120608
  Serious: Yes (Other)
  Sender: FDA-Public Use
  Company Number: US-ABBOTT-11P-163-0700766-00

PATIENT
  Age: 68 Year
  Sex: Female

DRUGS (6)
  1. NORVASC [Concomitant]
     Indication: HYPERTENSION
  2. PRAVACHOL [Concomitant]
     Indication: BLOOD CHOLESTEROL
  3. M.V.I. [Concomitant]
     Indication: PRODUCT USED FOR UNKNOWN INDICATION
  4. PRINZIDE [Concomitant]
     Indication: BLOOD PRESSURE
  5. FOLIC ACID [Concomitant]
     Indication: PRODUCT USED FOR UNKNOWN INDICATION
  6. HUMIRA [Suspect]
     Indication: RHEUMATOID ARTHRITIS
     Dates: start: 20040101

REACTIONS (3)
  - ARTHRODESIS [None]
  - INJECTION SITE PAIN [None]
  - CARPAL TUNNEL DECOMPRESSION [None]
